FAERS Safety Report 15701928 (Version 1)
Quarter: 2018Q4

REPORT INFORMATION
  Report Type: Spontaneous
  Country: US (occurrence: US)
  Receive Date: 20181209
  Receipt Date: 20181209
  Transmission Date: 20190205
  Serious: No
  Sender: FDA-Public Use
  Company Number: US-DSJP-DSU-2017-125241

PATIENT

DRUGS (1)
  1. BENICAR HCT [Suspect]
     Active Substance: HYDROCHLOROTHIAZIDE\OLMESARTAN MEDOXOMIL
     Indication: PRODUCT USED FOR UNKNOWN INDICATION
     Dosage: 1 DF
     Dates: start: 2010

REACTIONS (8)
  - Vomiting [Unknown]
  - Diarrhoea [Unknown]
  - Bronchitis chronic [Unknown]
  - Anaemia [Unknown]
  - Abdominal pain [Unknown]
  - Fatigue [Unknown]
  - Eczema [Unknown]
  - Weight decreased [Unknown]

NARRATIVE: CASE EVENT DATE: 20120602
